FAERS Safety Report 9358962 (Version 4)
Quarter: 2013Q3

REPORT INFORMATION
  Report Type: Spontaneous
  Country: JP (occurrence: JP)
  Receive Date: 20130620
  Receipt Date: 20130814
  Transmission Date: 20140515
  Serious: Yes (Hospitalization)
  Sender: FDA-Public Use
  Company Number: JP-B.I. PHARMACEUTICALS,INC./RIDGEFIELD-2013-BI-17337NB

PATIENT
  Age: 84 Year
  Sex: Male

DRUGS (3)
  1. SPIRIVA [Suspect]
     Indication: CHRONIC OBSTRUCTIVE PULMONARY DISEASE
     Dosage: 10 MCG
     Route: 055
  2. THEODUR [Suspect]
     Indication: CHRONIC OBSTRUCTIVE PULMONARY DISEASE
     Dosage: 200 MG
     Route: 048
  3. SEREVENT [Suspect]
     Indication: CHRONIC OBSTRUCTIVE PULMONARY DISEASE
     Dosage: 100 MCG
     Route: 055

REACTIONS (2)
  - Chronic obstructive pulmonary disease [Not Recovered/Not Resolved]
  - Nasopharyngitis [Unknown]
